FAERS Safety Report 17912676 (Version 4)
Quarter: 2020Q3

REPORT INFORMATION
  Report Type: Spontaneous
  Country: CH (occurrence: CH)
  Receive Date: 20200618
  Receipt Date: 20200911
  Transmission Date: 20201103
  Serious: Yes (Hospitalization)
  Sender: FDA-Public Use
  Company Number: CH-CELGENEUS-CHE-20200603776

PATIENT
  Age: 43 Year
  Sex: Male
  Weight: 87 kg

DRUGS (6)
  1. BORTEZOMIB. [Concomitant]
     Active Substance: BORTEZOMIB
     Indication: PLASMA CELL MYELOMA
     Dosage: 2.7 MILLIGRAM
     Route: 058
     Dates: start: 20190516, end: 20191121
  2. DEXAMETHASONE. [Suspect]
     Active Substance: DEXAMETHASONE
     Route: 048
     Dates: start: 20191221
  3. DARATUMUMAB [Concomitant]
     Active Substance: DARATUMUMAB
     Indication: PLASMA CELL MYELOMA
     Dosage: 1800 MILLIGRAM
     Route: 058
     Dates: start: 20190516, end: 20200608
  4. LENALIDOMIDE [Suspect]
     Active Substance: LENALIDOMIDE
     Indication: PLASMA CELL MYELOMA
     Route: 048
     Dates: start: 20190516, end: 20200602
  5. DARATUMUMAB [Concomitant]
     Active Substance: DARATUMUMAB
     Dosage: 1800 MILLIGRAM
     Route: 058
     Dates: start: 20200618
  6. DEXAMETHASONE. [Suspect]
     Active Substance: DEXAMETHASONE
     Indication: PLASMA CELL MYELOMA
     Route: 048
     Dates: start: 20190516

REACTIONS (1)
  - Cholecystitis [Recovered/Resolved]

NARRATIVE: CASE EVENT DATE: 20200531
